FAERS Safety Report 9698086 (Version 8)
Quarter: 2015Q1

REPORT INFORMATION
  Report Type: Spontaneous
  Country: US (occurrence: US)
  Receive Date: 20131120
  Receipt Date: 20150304
  Transmission Date: 20150721
  Serious: Yes (Hospitalization, Disabling, Other)
  Sender: FDA-Public Use
  Company Number: US-009507513-1311USA005057

PATIENT
  Sex: Female
  Weight: 87.98 kg

DRUGS (6)
  1. FOSAMAX [Suspect]
     Active Substance: ALENDRONATE SODIUM
     Indication: OSTEOPENIA
     Dosage: 70 MG, QW
     Route: 048
     Dates: start: 20001020, end: 20051113
  2. BONIVA [Suspect]
     Active Substance: IBANDRONATE SODIUM
     Indication: OSTEOPOROSIS
     Dosage: 150 MG, UNK
     Route: 048
     Dates: start: 20051113, end: 20111116
  3. VITAMIN D [Concomitant]
     Active Substance: CHOLECALCIFEROL
     Indication: PROPHYLAXIS
     Dosage: UNK
     Route: 048
     Dates: start: 1997
  4. BONIVA [Suspect]
     Active Substance: IBANDRONATE SODIUM
     Indication: OSTEOPENIA
  5. FOSAMAX [Suspect]
     Active Substance: ALENDRONATE SODIUM
     Indication: OSTEOPOROSIS
     Dosage: 10 MG, QD
     Route: 048
     Dates: start: 20000828, end: 20001020
  6. VITAMINS (UNSPECIFIED) [Concomitant]
     Active Substance: VITAMINS
     Indication: PROPHYLAXIS
     Dosage: UNK
     Route: 048
     Dates: start: 1997

REACTIONS (38)
  - Cholecystectomy [Unknown]
  - Hysterectomy [Unknown]
  - Dependence [Recovering/Resolving]
  - Spinal laminectomy [Unknown]
  - Dental implantation [Unknown]
  - Lumbar spinal stenosis [Unknown]
  - Normochromic normocytic anaemia [Unknown]
  - Stress fracture [Not Recovered/Not Resolved]
  - Chronic kidney disease [Not Recovered/Not Resolved]
  - Hypercholesterolaemia [Not Recovered/Not Resolved]
  - Sinus node dysfunction [Unknown]
  - Nephrolithiasis [Unknown]
  - Bursitis [Unknown]
  - Tonsillectomy [Unknown]
  - Cardiac pacemaker insertion [Unknown]
  - Knee arthroplasty [Unknown]
  - Spinal fusion surgery [Unknown]
  - Meniscus removal [Unknown]
  - Drug intolerance [Unknown]
  - Gastrooesophageal reflux disease [Unknown]
  - Femur fracture [Not Recovered/Not Resolved]
  - Fractured ischium [Unknown]
  - Femur fracture [Recovering/Resolving]
  - Osteoporosis [Not Recovered/Not Resolved]
  - Back pain [Not Recovered/Not Resolved]
  - Anaemia [Unknown]
  - Adverse event [Unknown]
  - Intramedullary rod insertion [Unknown]
  - Low turnover osteopathy [Not Recovered/Not Resolved]
  - Adenocarcinoma of colon [Unknown]
  - Femur fracture [Not Recovered/Not Resolved]
  - Osteoarthritis [Unknown]
  - Oestrogen deficiency [Unknown]
  - Hypertension [Not Recovered/Not Resolved]
  - Anxiety [Unknown]
  - Osteoarthritis [Unknown]
  - Oral pain [Unknown]
  - Constipation [Unknown]

NARRATIVE: CASE EVENT DATE: 20050429
